FAERS Safety Report 24813464 (Version 1)
Quarter: 2025Q1

REPORT INFORMATION
  Report Type: Other
  Country: FR (occurrence: FR)
  Receive Date: 20250107
  Receipt Date: 20250107
  Transmission Date: 20250409
  Serious: Yes (Hospitalization)
  Sender: Steriscience PTE
  Company Number: None

PATIENT
  Age: 81 Year
  Sex: Male
  Weight: 85 kg

DRUGS (4)
  1. MEROPENEM [Suspect]
     Active Substance: MEROPENEM
     Indication: Urinary tract infection
     Route: 042
     Dates: start: 20241102, end: 20241103
  2. MEROPENEM [Suspect]
     Active Substance: MEROPENEM
     Route: 042
     Dates: start: 20241104, end: 20241105
  3. MEROPENEM [Suspect]
     Active Substance: MEROPENEM
     Route: 042
     Dates: start: 20241106, end: 20241113
  4. MEROPENEM [Suspect]
     Active Substance: MEROPENEM
     Route: 042
     Dates: start: 20241114, end: 20241115

REACTIONS (1)
  - Encephalopathy [None]

NARRATIVE: CASE EVENT DATE: 20241104
